FAERS Safety Report 4304626-5 (Version None)
Quarter: 2004Q1

REPORT INFORMATION
  Report Type: 
  Country: None (occurrence: None)
  Receive Date: 20040226
  Receipt Date: 20031104
  Transmission Date: 20041129
  Serious: No
  Sender: FDA-Public Use
  Company Number: US-GLAXOSMITHKLINE-A0432879A

PATIENT
  Age: 47 Year
  Sex: Female

DRUGS (14)
  1. WELLBUTRIN [Suspect]
     Indication: DEPRESSION
     Dosage: 300MG PER DAY
     Route: 048
     Dates: start: 20031101
  2. ROBAXIN [Concomitant]
  3. ZOLOFT [Concomitant]
  4. TAGAMET [Concomitant]
  5. BENADRYL [Concomitant]
  6. SINGULAIR [Concomitant]
  7. HUMIBID [Concomitant]
  8. DALMANE [Concomitant]
  9. AMBIEN [Concomitant]
  10. PHENERGAN [Concomitant]
  11. ZOFRAN [Concomitant]
  12. ATIVAN [Concomitant]
  13. ZITHROMAX [Concomitant]
  14. ESTROGEN INJECTIONS [Concomitant]

REACTIONS (2)
  - ANXIETY [None]
  - CRYING [None]
